FAERS Safety Report 25599366 (Version 2)
Quarter: 2025Q3

REPORT INFORMATION
  Report Type: Spontaneous
  Country: EU (occurrence: EU)
  Receive Date: 20250724
  Receipt Date: 20250731
  Transmission Date: 20251021
  Serious: Yes (Hospitalization, Other)
  Sender: AUROBINDO
  Company Number: EU-MLMSERVICE-20250704-PI567293-00215-1

PATIENT
  Age: 9 Decade
  Sex: Male

DRUGS (15)
  1. PIPERACILLIN AND TAZOBACTAM [Suspect]
     Active Substance: PIPERACILLIN SODIUM\TAZOBACTAM SODIUM
     Indication: Pneumonia
     Route: 065
     Dates: start: 202305, end: 202305
  2. MESALAMINE [Suspect]
     Active Substance: MESALAMINE
     Indication: Colitis ulcerative
     Dosage: 4 GRAM, ONCE A DAY
     Route: 065
     Dates: start: 20230310, end: 20230521
  3. MESALAMINE [Suspect]
     Active Substance: MESALAMINE
     Dosage: 4 GRAM, ONCE A DAY (ORAL MESALAZINE 4 G ONE DAILY (SACHET))
     Route: 048
     Dates: start: 202303, end: 20230521
  4. MESALAMINE [Suspect]
     Active Substance: MESALAMINE
     Dosage: 1 GRAM, TWO TIMES A DAY
     Route: 054
     Dates: start: 202303, end: 20230521
  5. METHYLPREDNISOLONE [Concomitant]
     Active Substance: METHYLPREDNISOLONE
     Indication: Colitis ulcerative
     Dosage: 56 MILLIGRAM, ONCE A DAY
     Route: 065
     Dates: start: 20230310, end: 20230521
  6. EDOXABAN [Concomitant]
     Active Substance: EDOXABAN
     Indication: Product used for unknown indication
     Dosage: 60 MILLIGRAM, ONCE A DAY
     Route: 065
  7. AMLODIPINE\VALSARTAN [Concomitant]
     Active Substance: AMLODIPINE\VALSARTAN
     Indication: Product used for unknown indication
     Dosage: 1 DOSAGE FORM, ONCE A DAY
     Route: 065
  8. BISOPROLOL [Concomitant]
     Active Substance: BISOPROLOL
     Indication: Product used for unknown indication
     Dosage: 2.5 MILLIGRAM, ONCE A DAY
     Route: 065
  9. OMEPRAZOLE [Concomitant]
     Active Substance: OMEPRAZOLE
     Indication: Product used for unknown indication
     Dosage: 20 MILLIGRAM, ONCE A DAY
     Route: 065
  10. INSULIN GLARGINE [Concomitant]
     Active Substance: INSULIN GLARGINE
     Indication: Type 2 diabetes mellitus
     Dosage: 20 INTERNATIONAL UNIT, ONCE A DAY
     Route: 058
     Dates: start: 20230322
  11. INSULIN ASPART [Concomitant]
     Active Substance: INSULIN ASPART
     Indication: Type 2 diabetes mellitus
     Route: 065
     Dates: start: 20230322
  12. PREDNISONE [Concomitant]
     Active Substance: PREDNISONE
     Indication: Type 2 diabetes mellitus
     Dosage: 80 MILLIGRAM, ONCE A DAY (80 MG DAILY ON A TAPERING SCHEDULE DOWN TO 5 MG DAILY)
     Route: 065
     Dates: start: 202303
  13. PREDNISONE [Concomitant]
     Active Substance: PREDNISONE
     Dosage: 5 MILLIGRAM, ONCE A DAY (80 MG DAILY ON A TAPERING SCHEDULE DOWN TO 5 MG DAILY)
     Route: 065
     Dates: start: 202303
  14. CALCIUM CARBONATE [Concomitant]
     Active Substance: CALCIUM CARBONATE
     Indication: Type 2 diabetes mellitus
     Route: 065
     Dates: start: 20230310
  15. CHOLECALCIFEROL [Concomitant]
     Active Substance: CHOLECALCIFEROL
     Indication: Type 2 diabetes mellitus
     Route: 065
     Dates: start: 202303

REACTIONS (4)
  - Type 2 diabetes mellitus [Unknown]
  - Weight decreased [Unknown]
  - Idiopathic interstitial pneumonia [Recovering/Resolving]
  - Hepatitis acute [Recovered/Resolved]

NARRATIVE: CASE EVENT DATE: 20230101
